FAERS Safety Report 9342697 (Version 2)
Quarter: 2014Q1

REPORT INFORMATION
  Report Type: Spontaneous
  Country: US (occurrence: US)
  Receive Date: 20130611
  Receipt Date: 20140110
  Transmission Date: 20141002
  Serious: Yes (Death, Other)
  Sender: FDA-Public Use
  Company Number: US-INCYTE CORPORATION-2013IN000871

PATIENT
  Age: 71 Year
  Sex: Male
  Weight: 82.5 kg

DRUGS (11)
  1. JAKAFI [Suspect]
     Indication: MYELOFIBROSIS
     Dosage: 10 MG, BID
     Route: 048
     Dates: start: 20120921, end: 20130426
  2. JAKAFI [Suspect]
     Indication: POLYCYTHAEMIA VERA
     Dosage: 5 MG, BID
     Route: 048
     Dates: start: 2013, end: 20140101
  3. TAMSULOSIN [Concomitant]
     Dosage: 0.4 MG, QD
  4. METOPROLOL SR [Concomitant]
     Dosage: 25 MG, QD
  5. SPIRONOLACTONE [Concomitant]
     Dosage: 25 MG, QD
  6. LASIX [Concomitant]
     Dosage: 20 MG, QD
     Route: 048
  7. AMOXICILLIN RPG [Concomitant]
     Dosage: UNK, BID
  8. VITAMIN D NOS [Concomitant]
     Dosage: 100 IU, BID
  9. SIMVASTATIN ACO [Concomitant]
     Dosage: 10 MG, QD
  10. ASPIRIN [Concomitant]
     Dosage: 81 MG, QD
  11. OMEPRAZOLE [Concomitant]
     Dosage: 20 MG, QD
     Route: 048

REACTIONS (11)
  - Death [Fatal]
  - Blast cells present [Unknown]
  - Thrombocytopenia [Not Recovered/Not Resolved]
  - Neutrophil count decreased [Not Recovered/Not Resolved]
  - Discomfort [Not Recovered/Not Resolved]
  - Pruritus [Not Recovered/Not Resolved]
  - Decreased appetite [Not Recovered/Not Resolved]
  - Weight decreased [Unknown]
  - Balance disorder [Not Recovered/Not Resolved]
  - Dizziness [Not Recovered/Not Resolved]
  - Vertigo [Not Recovered/Not Resolved]
